FAERS Safety Report 13052224 (Version 3)
Quarter: 2017Q1

REPORT INFORMATION
  Report Type: Report from Study
  Country: GB (occurrence: GB)
  Receive Date: 20161221
  Receipt Date: 20170109
  Transmission Date: 20170428
  Serious: Yes (Life-Threatening, Hospitalization)
  Sender: FDA-Public Use
  Company Number: GB-CELGENEUS-GBR-2016124072

PATIENT
  Age: 68 Year
  Sex: Male

DRUGS (18)
  1. HUMULIN S [Concomitant]
     Indication: DIABETES MELLITUS
     Dosage: 18UNITS
     Route: 058
     Dates: start: 1986
  2. DOMPERIDONE [Concomitant]
     Active Substance: DOMPERIDONE
     Indication: NAUSEA
     Dosage: 30 MG
     Route: 048
     Dates: start: 20161208
  3. HUMULIN S [Concomitant]
     Dosage: 22 UNITS
     Route: 058
     Dates: start: 1986
  4. CODEINE [Concomitant]
     Active Substance: CODEINE
     Indication: ABDOMINAL PAIN
     Dosage: 120 MG
     Route: 048
     Dates: start: 20161027
  5. ATORVASTATIN [Concomitant]
     Active Substance: ATORVASTATIN
     Indication: HYPERLIPIDAEMIA
     Dosage: 40 MG
     Route: 048
     Dates: start: 1980
  6. HUMULIN L [Concomitant]
     Active Substance: INSULIN HUMAN
     Indication: DIABETES MELLITUS
     Dosage: 18UNITS
     Route: 058
     Dates: start: 1986
  7. HYOSCINE [Concomitant]
     Active Substance: SCOPOLAMINE
     Indication: ABDOMINAL PAIN
     Dosage: 40 MG
     Route: 048
     Dates: start: 201606, end: 20161128
  8. AMITRIPTYLINE [Concomitant]
     Active Substance: AMITRIPTYLINE
     Indication: INSOMNIA
     Dosage: 150 MG
     Route: 048
     Dates: start: 20161122
  9. ZOPICLONE [Concomitant]
     Active Substance: ZOPICLONE
     Indication: INSOMNIA
     Dosage: 7.5
     Route: 048
     Dates: start: 20161118
  10. LISINOPRIL. [Concomitant]
     Active Substance: LISINOPRIL
     Indication: HYPERTENSION
     Dosage: 2.5 MG
     Route: 048
     Dates: start: 1986
  11. DEXAMETHASONE. [Suspect]
     Active Substance: DEXAMETHASONE
     Indication: NAUSEA
     Dosage: 16 MG
     Route: 048
     Dates: start: 20161208
  12. CREON [Concomitant]
     Active Substance: PANCRELIPASE AMYLASE\PANCRELIPASE LIPASE\PANCRELIPASE PROTEASE
     Indication: PANCREATIC INSUFFICIENCY
     Dosage: 75000
     Route: 048
     Dates: start: 20161118
  13. ABRAXANE [Suspect]
     Active Substance: PACLITAXEL
     Indication: PANCREATIC CARCINOMA
     Dosage: 205MG
     Route: 041
     Dates: start: 20161208, end: 20161208
  14. GEMCITABINE [Suspect]
     Active Substance: GEMCITABINE\GEMCITABINE HYDROCHLORIDE
     Indication: PANCREATIC CARCINOMA
     Dosage: 1630.2MG
     Route: 065
     Dates: start: 20161208, end: 20161208
  15. URSODEOXYCHOLIC ACID [Concomitant]
     Active Substance: URSODIOL
     Indication: PANCREATIC INSUFFICIENCY
     Dosage: 750 MG
     Route: 048
     Dates: start: 20161118
  16. HUMULIN L [Concomitant]
     Active Substance: INSULIN HUMAN
     Dosage: 22 UNITS
     Route: 058
     Dates: start: 1986
  17. ATRA [Suspect]
     Active Substance: TRETINOIN
     Indication: PANCREATIC CARCINOMA
     Dosage: 30MG
     Route: 065
     Dates: start: 20161208, end: 20161211
  18. ONDANSETRON [Concomitant]
     Active Substance: ONDANSETRON
     Indication: NAUSEA
     Dosage: 16 MG
     Route: 048
     Dates: start: 20161208

REACTIONS (2)
  - Diabetic ketoacidosis [Recovered/Resolved]
  - Hyperglycaemia [Not Recovered/Not Resolved]

NARRATIVE: CASE EVENT DATE: 20161212
